FAERS Safety Report 5191870-0 (Version None)
Quarter: 2006Q4

REPORT INFORMATION
  Report Type: 
  Country: None (occurrence: None)
  Receive Date: 20061220
  Receipt Date: 20061207
  Transmission Date: 20070319
  Serious: Yes (Hospitalization, Other)
  Sender: FDA-Public Use
  Company Number: 2006-02444

PATIENT
  Age: 68 Year
  Sex: Female
  Weight: 51.5 kg

DRUGS (13)
  1. VELCADE [Suspect]
     Indication: MULTIPLE MYELOMA
     Dosage: SEE IMAGE
     Dates: start: 20060822, end: 20060901
  2. VELCADE [Suspect]
     Indication: MULTIPLE MYELOMA
     Dosage: SEE IMAGE
     Dates: start: 20060701
  3. VELCADE [Suspect]
     Indication: MULTIPLE MYELOMA
     Dosage: SEE IMAGE
     Dates: start: 20060929
  4. DOXORUBICIN HCL [Suspect]
     Indication: MULTIPLE MYELOMA
     Dosage: 15.00 MG/M2; 10..0 MG/M2
     Dates: start: 20060822, end: 20060829
  5. DOXORUBICIN HCL [Suspect]
     Indication: MULTIPLE MYELOMA
     Dosage: 15.00 MG/M2; 10..0 MG/M2
     Dates: start: 20060701
  6. DOXORUBICIN HCL [Suspect]
     Indication: MULTIPLE MYELOMA
     Dosage: 15.00 MG/M2; 10..0 MG/M2
     Dates: start: 20060929
  7. ESCITALOPRAM OXALATE [Concomitant]
  8. DEXAMETHASONE [Concomitant]
  9. FLUCONAZOLE [Concomitant]
  10. ACYCLOVIR [Concomitant]
  11. MORPHINE [Concomitant]
  12. RANITIDINE [Concomitant]
  13. COMPAZINE [Concomitant]

REACTIONS (29)
  - BACTERIA STOOL IDENTIFIED [None]
  - BLOOD CHLORIDE DECREASED [None]
  - BLOOD LACTATE DEHYDROGENASE INCREASED [None]
  - BLOOD SODIUM DECREASED [None]
  - BLOOD UREA INCREASED [None]
  - CLOSTRIDIAL INFECTION [None]
  - CONFUSIONAL STATE [None]
  - CONVULSION [None]
  - CYTOMEGALOVIRUS OESOPHAGITIS [None]
  - DRUG TOXICITY [None]
  - DYSPHAGIA [None]
  - ELECTROMECHANICAL DISSOCIATION [None]
  - ENCEPHALITIS CYTOMEGALOVIRUS [None]
  - ENCEPHALITIS VIRAL [None]
  - HAEMATEMESIS [None]
  - HAEMATOCRIT DECREASED [None]
  - HAEMOGLOBIN DECREASED [None]
  - MUSCULOSKELETAL STIFFNESS [None]
  - NAUSEA [None]
  - NEUROTOXICITY [None]
  - NUCLEAR MAGNETIC RESONANCE IMAGING BRAIN ABNORMAL [None]
  - ODYNOPHAGIA [None]
  - OESOPHAGEAL CANDIDIASIS [None]
  - OESOPHAGEAL HAEMORRHAGE [None]
  - PAIN [None]
  - PLATELET COUNT DECREASED [None]
  - TREMOR [None]
  - VOMITING [None]
  - WHITE BLOOD CELL COUNT DECREASED [None]
